FAERS Safety Report 5363571-7 (Version None)
Quarter: 2007Q2

REPORT INFORMATION
  Report Type: 
  Country: None (occurrence: None)
  Receive Date: 20070620
  Receipt Date: 20070615
  Transmission Date: 20071010
  Serious: Yes (Life-Threatening)
  Sender: FDA-Public Use
  Company Number: US-ASTRAZENECA-2007UW14469

PATIENT
  Age: 50 Year
  Sex: Male
  Weight: 113.4 kg

DRUGS (3)
  1. SEROQUEL [Suspect]
     Indication: BIPOLAR DISORDER
     Dosage: 200 TABLETS
     Route: 048
  2. ATENOLOL [Suspect]
     Route: 048
  3. CLONAZEPAM [Suspect]

REACTIONS (5)
  - BRADYCARDIA [None]
  - HYPOTENSION [None]
  - HYPOTHERMIA [None]
  - MEDICATION ERROR [None]
  - OVERDOSE [None]
